FAERS Safety Report 9621283 (Version 1)
Quarter: 2013Q4

REPORT INFORMATION
  Report Type: Report from Study
  Country: US (occurrence: US)
  Receive Date: 20131015
  Receipt Date: 20131015
  Transmission Date: 20140711
  Serious: Yes (Hospitalization)
  Sender: FDA-Public Use
  Company Number: US-ROCHE-1288918

PATIENT
  Age: 63 Year
  Sex: Male
  Weight: 84.9 kg

DRUGS (2)
  1. XELODA [Suspect]
     Indication: COLON CANCER
     Dosage: 3 TABLETS TWICE DAILY
     Route: 048
     Dates: end: 20130601
  2. XELODA [Suspect]
     Dosage: 3 TABLETS TWICE DAILY
     Route: 048
     Dates: start: 20130701

REACTIONS (2)
  - Hernia repair [Recovered/Resolved]
  - Tenderness [Recovered/Resolved]
